FAERS Safety Report 9159453 (Version 1)
Quarter: 2013Q1

REPORT INFORMATION
  Report Type: Spontaneous
  Country: AR (occurrence: AR)
  Receive Date: 20130313
  Receipt Date: 20130313
  Transmission Date: 20140127
  Serious: Yes (Hospitalization, Other)
  Sender: FDA-Public Use
  Company Number: PHHY2012AR119143

PATIENT
  Sex: Male

DRUGS (1)
  1. EXFORGE [Suspect]
     Indication: HYPERTENSION
     Dosage: 1 DF,  (80/5MG) DAILY
     Route: 048
     Dates: start: 201101, end: 20120319

REACTIONS (3)
  - Myocardial infarction [Recovering/Resolving]
  - Arterial occlusive disease [Unknown]
  - Stress [Unknown]
